FAERS Safety Report 6288867-6 (Version None)
Quarter: 2009Q3

REPORT INFORMATION
  Report Type: 
  Country: None (occurrence: None)
  Receive Date: 20090729
  Receipt Date: 20090717
  Transmission Date: 20100115
  Serious: Yes (Other)
  Sender: FDA-Public Use
  Company Number: ES-ELI_LILLY_AND_COMPANY-ES200907004029

PATIENT
  Sex: Female

DRUGS (8)
  1. CYMBALTA [Suspect]
     Indication: FIBROMYALGIA
     Dosage: 30 MG, DAILY (1/D)
     Route: 048
     Dates: start: 20070101
  2. VOLTAREN [Concomitant]
     Indication: PAIN
     Dosage: 75 MG, 2/D
     Route: 065
  3. ALMAX [Concomitant]
     Dosage: 1.5 G, EVERY 72 HOURS
     Route: 065
  4. LEXATIN [Concomitant]
     Dosage: 1.5 MG, DAILY (1/D)
     Route: 065
  5. GLUCOSAMINE SULFATE [Concomitant]
     Dosage: 1500 MG, DAILY (1/D)
     Route: 065
  6. ADVANTAN [Concomitant]
     Dosage: 60 MG, EVERY 72 HOURS
     Route: 065
  7. FERRO SANOL [Concomitant]
     Dosage: 100 MG, DAILY (1/D)
     Route: 065
  8. MYOLASTAN [Concomitant]
     Dosage: 50 MG, DAILY (1/D)
     Route: 065

REACTIONS (4)
  - HYPERHIDROSIS [None]
  - INSOMNIA [None]
  - THYROXINE DECREASED [None]
  - WEIGHT INCREASED [None]
